FAERS Safety Report 6360577-6 (Version None)
Quarter: 2009Q3

REPORT INFORMATION
  Report Type: 
  Country: None (occurrence: None)
  Receive Date: 20090915
  Receipt Date: 20090904
  Transmission Date: 20100115
  Serious: Yes (Death, Other)
  Sender: FDA-Public Use
  Company Number: GXKR2009US09951

PATIENT
  Age: 35 Year
  Sex: Male

DRUGS (4)
  1. METHADONE (NGX) (METHADONE) TABLET, 10MG [Suspect]
     Dosage: 20 DF, ONCE/SINGLE, ORAL
     Route: 048
  2. VENLAFAXINE HCL [Suspect]
  3. TOPIRAMATE [Concomitant]
  4. SERTRALINE(NGX)(SERTRALINE [Suspect]

REACTIONS (13)
  - ALCOHOL USE [None]
  - ANXIETY [None]
  - BRADYPHRENIA [None]
  - COMPLETED SUICIDE [None]
  - DISORIENTATION [None]
  - DRUG INTERACTION [None]
  - INTENTIONAL OVERDOSE [None]
  - LOSS OF CONSCIOUSNESS [None]
  - PANIC REACTION [None]
  - RESPIRATORY DEPRESSION [None]
  - RESPIRATORY RATE INCREASED [None]
  - SEROTONIN SYNDROME [None]
  - THERAPEUTIC AGENT TOXICITY [None]
